FAERS Safety Report 8299317-2 (Version None)
Quarter: 2012Q2

REPORT INFORMATION
  Report Type: 
  Country: None (occurrence: None)
  Receive Date: 20120419
  Receipt Date: 20120411
  Transmission Date: 20120825
  Serious: Yes (Hospitalization, Other)
  Sender: FDA-Public Use
  Company Number: US-ABBOTT-12P-163-0911848-00

PATIENT
  Age: 51 Year
  Sex: Female

DRUGS (8)
  1. HUMIRA [Suspect]
     Indication: CROHN'S DISEASE
     Dates: start: 20120101, end: 20120216
  2. MULTI-VITAMIN [Concomitant]
     Indication: PRODUCT USED FOR UNKNOWN INDICATION
     Route: 048
  3. CALCIUM CARBONATE [Concomitant]
     Indication: SUPPLEMENTATION THERAPY
  4. VALTREX [Concomitant]
     Indication: PRODUCT USED FOR UNKNOWN INDICATION
     Route: 048
  5. PREDNISONE TAB [Concomitant]
     Indication: PRODUCT USED FOR UNKNOWN INDICATION
  6. VITAMIN D [Concomitant]
     Indication: SUPPLEMENTATION THERAPY
  7. MERCAPTOPURINE [Concomitant]
     Indication: PRODUCT USED FOR UNKNOWN INDICATION
  8. LIPITOR [Concomitant]
     Indication: PRODUCT USED FOR UNKNOWN INDICATION

REACTIONS (14)
  - PYREXIA [None]
  - SOMNOLENCE [None]
  - PROTEIN TOTAL DECREASED [None]
  - WOUND COMPLICATION [None]
  - IMPAIRED HEALING [None]
  - PULMONARY EMBOLISM [None]
  - MUSCLE RUPTURE [None]
  - SKIN ATROPHY [None]
  - CROHN'S DISEASE [None]
  - POSTOPERATIVE WOUND INFECTION [None]
  - THROMBOSIS [None]
  - PYODERMA GANGRENOSUM [None]
  - DRUG INEFFECTIVE [None]
  - ENTEROCUTANEOUS FISTULA [None]
